FAERS Safety Report 23232054 (Version 1)
Quarter: 2023Q4

REPORT INFORMATION
  Report Type: Spontaneous
  Country: GB (occurrence: GB)
  Receive Date: 20231127
  Receipt Date: 20231127
  Transmission Date: 20240110
  Serious: Yes (Other)
  Sender: FDA-Public Use
  Company Number: GB-GUERBET / GUERBET LABORATORIES-GB-20230130

PATIENT
  Age: 52 Year
  Sex: Female

DRUGS (4)
  1. LIPIODOL [Suspect]
     Active Substance: ETHIODIZED OIL
     Indication: Gastric varices haemorrhage
     Dosage: RATIO OF 0.5 ML OF HISTOACRYL FOR EVERY 1.0 ML LIPIODOL ON 2 OCCASIONS. ON THE FIRST OCCASION, 2.5 M
  2. LIPIODOL [Suspect]
     Active Substance: ETHIODIZED OIL
     Dosage: RATIO OF 0.5 ML OF HISTOACRYL FOR EVERY 1.0 ML LIPIODOL ON 2 OCCASIONS. ON THE SECOND OCCASION 3 ML
  3. HISTOACRYL [Suspect]
     Active Substance: ENBUCRILATE
     Indication: Gastric varices haemorrhage
     Dosage: RATIO OF 0.5 ML OF HISTOACRYL FOR EVERY 1.0 ML LIPIODOL ON 2 OCCASIONS. ON THE FIRST OCCASION, 2.5 M
  4. HISTOACRYL [Suspect]
     Active Substance: ENBUCRILATE
     Dosage: RATIO OF 0.5 ML OF HISTOACRYL FOR EVERY 1.0 ML LIPIODOL ON 2 OCCASIONS. ON THE SECOND OCCASION 3 ML

REACTIONS (4)
  - Liver injury [Recovering/Resolving]
  - Portal vein pressure increased [Unknown]
  - Ascites [Unknown]
  - Product use in unapproved indication [Unknown]
